FAERS Safety Report 6293262-X (Version None)
Quarter: 2009Q3

REPORT INFORMATION
  Report Type: 
  Country: None (occurrence: None)
  Receive Date: 20090731
  Receipt Date: 20090722
  Transmission Date: 20100115
  Serious: Yes (Hospitalization)
  Sender: FDA-Public Use
  Company Number: IN-WATSON-2009-05766

PATIENT
  Age: 15 Year
  Sex: Male

DRUGS (1)
  1. CHLOROQUINE (WATSON LABORATORIES) [Suspect]
     Indication: PYREXIA
     Dosage: 6 TABLETS IN DIVIDED DOSES
     Route: 048

REACTIONS (1)
  - MANIA [None]
